FAERS Safety Report 6156871-4 (Version None)
Quarter: 2009Q2

REPORT INFORMATION
  Report Type: 
  Country: None (occurrence: None)
  Receive Date: 20090416
  Receipt Date: 20090406
  Transmission Date: 20091009
  Serious: Yes (Other)
  Sender: FDA-Public Use
  Company Number: JP-BRISTOL-MYERS SQUIBB COMPANY-14577803

PATIENT
  Age: 66 Year
  Sex: Male

DRUGS (3)
  1. TRAZODONE HCL [Suspect]
     Indication: SEDATIVE THERAPY
  2. TIAPRIDE [Concomitant]
     Indication: SEDATIVE THERAPY
  3. RISPERIDONE [Concomitant]
     Indication: RESTLESSNESS

REACTIONS (1)
  - TORSADE DE POINTES [None]
